APPROVED DRUG PRODUCT: ARISTOCORT
Active Ingredient: TRIAMCINOLONE DIACETATE
Strength: 25MG/ML
Dosage Form/Route: INJECTABLE;INJECTION
Application: N011685 | Product #003
Applicant: FOSUN PHARMA USA INC
Approved: Approved Prior to Jan 1, 1982 | RLD: No | RS: No | Type: DISCN